FAERS Safety Report 6210930-6 (Version None)
Quarter: 2009Q2

REPORT INFORMATION
  Report Type: 
  Country: None (occurrence: None)
  Receive Date: 20090601
  Receipt Date: 20090522
  Transmission Date: 20091009
  Serious: Yes (Other)
  Sender: FDA-Public Use
  Company Number: US-ABBOTT-09P-163-0575730-00

PATIENT
  Sex: Female
  Weight: 80.358 kg

DRUGS (2)
  1. HUMIRA [Suspect]
     Indication: PSORIATIC ARTHROPATHY
     Dates: start: 20060623, end: 20090401
  2. HUMIRA [Suspect]
     Indication: PSORIASIS

REACTIONS (3)
  - ABSCESS [None]
  - DIVERTICULITIS [None]
  - LARGE INTESTINE PERFORATION [None]
